FAERS Safety Report 16815592 (Version 1)
Quarter: 2019Q3

REPORT INFORMATION
  Report Type: Spontaneous
  Country: US (occurrence: US)
  Receive Date: 20190725
  Receipt Date: 20190725
  Transmission Date: 20191005
  Serious: Yes (Other)
  Sender: FDA-Public Use
  Company Number: None

PATIENT
  Age: 64 Year
  Sex: Female
  Weight: 92.08 kg

DRUGS (6)
  1. OMEPRAZOLE. [Concomitant]
     Active Substance: OMEPRAZOLE
  2. KETOROLAC TROMETHAMINE. [Suspect]
     Active Substance: KETOROLAC TROMETHAMINE
     Indication: EPISCLERITIS
     Dosage: ?          QUANTITY:5 ML MILLILITRE(S);OTHER FREQUENCY:4 TIMES/DAY R EYE ;?
     Route: 047
     Dates: start: 20190701, end: 20190701
  3. SYSTANE ULTRA EYE DROPS [Concomitant]
  4. KETOROLAC TROMETHAMINE. [Suspect]
     Active Substance: KETOROLAC TROMETHAMINE
     Indication: DRY EYE
     Dosage: ?          QUANTITY:5 ML MILLILITRE(S);OTHER FREQUENCY:4 TIMES/DAY R EYE ;?
     Route: 047
     Dates: start: 20190701, end: 20190701
  5. TRONOLANE RECTAL CREAM [Concomitant]
  6. HYOSCYAMINE (NULEY) [Concomitant]

REACTIONS (6)
  - Dyspepsia [None]
  - Taste disorder [None]
  - Pruritus [None]
  - Rash [None]
  - Abdominal pain upper [None]
  - Skin discolouration [None]

NARRATIVE: CASE EVENT DATE: 20190701
